FAERS Safety Report 21641095 (Version 2)
Quarter: 2022Q4

REPORT INFORMATION
  Report Type: Spontaneous
  Country: US (occurrence: US)
  Receive Date: 20221125
  Receipt Date: 20221129
  Transmission Date: 20230112
  Serious: No
  Sender: FDA-Public Use
  Company Number: US-JNJFOC-20221126901

PATIENT
  Sex: Female

DRUGS (2)
  1. SIMPONI [Suspect]
     Active Substance: GOLIMUMAB
     Indication: Rheumatoid arthritis
     Route: 058
     Dates: start: 202201
  2. SIMPONI [Suspect]
     Active Substance: GOLIMUMAB
     Dosage: SIMPONI ARIA FOR 3 MONTHS
     Route: 041

REACTIONS (1)
  - Drug ineffective [Unknown]
